FAERS Safety Report 6785769-3 (Version None)
Quarter: 2010Q2

REPORT INFORMATION
  Report Type: 
  Country: None (occurrence: None)
  Receive Date: 20100623
  Receipt Date: 20100611
  Transmission Date: 20101027
  Serious: Yes (Hospitalization, Other)
  Sender: FDA-Public Use
  Company Number: US-SANOFI-AVENTIS-2010SA024019

PATIENT
  Age: 75 Year
  Sex: Male
  Weight: 72.57 kg

DRUGS (21)
  1. AMBIEN [Suspect]
     Indication: INSOMNIA
     Route: 048
     Dates: start: 20091208, end: 20100415
  2. ASPIRIN [Concomitant]
     Route: 048
  3. ASPIRIN [Concomitant]
     Route: 048
  4. MULTIVITAMIN [Concomitant]
     Dosage: 1 PER DAY
  5. DOCUSATE SODIUM [Concomitant]
     Route: 065
  6. CALCIUM/VITAMIN D [Concomitant]
     Route: 065
  7. MULTI-VITAMINS [Concomitant]
     Dosage: 1 PER DAY
     Route: 065
  8. ALENDRONATE SODIUM [Concomitant]
     Route: 065
  9. KLOR-CON [Concomitant]
     Route: 065
  10. HYDROCHLOROTHIAZIDE [Concomitant]
     Route: 065
  11. LOVASTATIN [Concomitant]
     Route: 065
  12. LOVASTATIN [Concomitant]
     Route: 065
  13. AMLODIPINE BESYLATE [Concomitant]
     Dosage: 1/2 IN AM AND 1/2 IN PM
     Route: 065
  14. LISINOPRIL [Concomitant]
     Dosage: 1/2 TAB IN AM AND 1/2 TAB IN PM
     Route: 065
  15. CARVEDILOL [Concomitant]
     Route: 065
  16. VICODIN [Concomitant]
     Dosage: 5MG/500MG - 1-5 DAY
     Route: 065
  17. FLUTICASONE PROPIONATE [Concomitant]
     Dosage: 2 SPRAYS
     Route: 065
  18. ATENOLOL [Concomitant]
     Dates: end: 20100101
  19. ZITHROMAX [Concomitant]
     Dosage: TWO FIVE DAY COURSES
     Dates: start: 20100101, end: 20100101
  20. ZITHROMAX [Concomitant]
     Indication: COUGH
     Dosage: TWO FIVE DAY COURSES
     Dates: start: 20100101, end: 20100101
  21. TAMIFLU /SCH/ [Concomitant]

REACTIONS (17)
  - ABASIA [None]
  - ALTERED STATE OF CONSCIOUSNESS [None]
  - ANGER [None]
  - ASTHENIA [None]
  - ATAXIA [None]
  - BALANCE DISORDER [None]
  - CONFUSIONAL STATE [None]
  - CONVULSION [None]
  - DEPRESSED LEVEL OF CONSCIOUSNESS [None]
  - DISORIENTATION [None]
  - DRUG ADMINISTRATION ERROR [None]
  - DYSSTASIA [None]
  - FEELING ABNORMAL [None]
  - HEADACHE [None]
  - HEART RATE INCREASED [None]
  - TRANSIENT ISCHAEMIC ATTACK [None]
  - TREMOR [None]
